FAERS Safety Report 20642337 (Version 2)
Quarter: 2022Q2

REPORT INFORMATION
  Report Type: Spontaneous
  Country: JP (occurrence: JP)
  Receive Date: 20220328
  Receipt Date: 20220405
  Transmission Date: 20220721
  Serious: Yes (Other)
  Sender: FDA-Public Use
  Company Number: JP-NOVARTISPH-NVSJ2022JP004972

PATIENT

DRUGS (2)
  1. JADENU [Suspect]
     Active Substance: DEFERASIROX
     Indication: Iron overload
     Dosage: UNK
     Route: 048
  2. JADENU [Suspect]
     Active Substance: DEFERASIROX
     Indication: Aplastic anaemia

REACTIONS (3)
  - Neoplasm malignant [Unknown]
  - Pain [Unknown]
  - General physical health deterioration [Unknown]
